FAERS Safety Report 15819865 (Version 1)
Quarter: 2019Q1

REPORT INFORMATION
  Report Type: Other
  Country: NL (occurrence: NL)
  Receive Date: 20190114
  Receipt Date: 20190114
  Transmission Date: 20190417
  Serious: Yes (Death, Hospitalization, Other)
  Sender: FDA-Public Use
  Company Number: NL-APOTEX-2019AP005154

PATIENT
  Age: 37 Year
  Sex: Female

DRUGS (6)
  1. CISPLATINE [Concomitant]
     Active Substance: CISPLATIN
     Indication: CERVIX CARCINOMA
     Route: 065
  2. CLOZAPINE. [Suspect]
     Active Substance: CLOZAPINE
     Dosage: DOSAGE FORM: UNSPECIFIED
     Route: 065
  3. LEPONEX [Suspect]
     Active Substance: CLOZAPINE
     Indication: SCHIZOPHRENIA
     Dosage: 150 MG
     Route: 048
  4. CLOMIPRAMINE [Concomitant]
     Active Substance: CLOMIPRAMINE
     Indication: PRODUCT USED FOR UNKNOWN INDICATION
     Route: 048
  5. RISPERIDONE. [Suspect]
     Active Substance: RISPERIDONE
     Indication: PRODUCT USED FOR UNKNOWN INDICATION
     Dosage: DOSAGE FORM: UNSPECIFIED
     Route: 048
  6. CLOZAPINE. [Suspect]
     Active Substance: CLOZAPINE
     Indication: SCHIZOPHRENIA
     Dosage: 150 MG, QD (DAILY DOSE: 150 ; FORM: UNSPECIFIED)
     Route: 048

REACTIONS (13)
  - Metastatic neoplasm [Fatal]
  - Schizophrenia [Recovered/Resolved]
  - Cervix carcinoma [Recovered/Resolved]
  - Psychotic disorder [Recovered/Resolved]
  - Obsessive-compulsive disorder [Recovered/Resolved]
  - Obesity [Unknown]
  - Death [Fatal]
  - Pulmonary embolism [Fatal]
  - Diabetes mellitus [Unknown]
  - Weight increased [Unknown]
  - Constipation [Unknown]
  - Malignant neoplasm of unknown primary site [Unknown]
  - Lymphadenopathy [Unknown]
